FAERS Safety Report 5955895-7 (Version None)
Quarter: 2008Q4

REPORT INFORMATION
  Report Type: 
  Country: None (occurrence: None)
  Receive Date: 20081117
  Receipt Date: 20081111
  Transmission Date: 20090506
  Serious: Yes (Life-Threatening)
  Sender: FDA-Public Use
  Company Number: DE-MERCK-0811DEU00041

PATIENT
  Age: 52 Year
  Sex: Female

DRUGS (1)
  1. JANUMET [Suspect]
     Indication: TYPE 2 DIABETES MELLITUS
     Route: 048
     Dates: start: 20081001, end: 20081101

REACTIONS (3)
  - DIZZINESS [None]
  - NAUSEA [None]
  - VOMITING [None]
